FAERS Safety Report 5408441-0 (Version None)
Quarter: 2007Q3

REPORT INFORMATION
  Report Type: 
  Country: None (occurrence: None)
  Receive Date: 20070808
  Receipt Date: 20070730
  Transmission Date: 20080115
  Serious: Yes (Other)
  Sender: FDA-Public Use
  Company Number: US-ROCHE-509147

PATIENT
  Age: 63 Year
  Sex: Female

DRUGS (16)
  1. BONIVA [Suspect]
     Indication: OSTEOPOROSIS
     Dosage: EVERY 3 MONTHS
     Route: 042
     Dates: start: 20070101
  2. ACIPHEX [Concomitant]
  3. ASPIRIN [Concomitant]
  4. SOMA [Concomitant]
  5. KEFLEX [Concomitant]
  6. UNSPECIFIED MEDICATION [Concomitant]
     Dosage: REPORTED AS CALTRATE PLUS D
  7. UNSPECIFIED MEDICATION [Concomitant]
     Dosage: REPORTED AS VITAMIN D
  8. UNSPECIFIED MEDICATION [Concomitant]
     Dosage: REPORTED AS ACIDOPHOLIS
  9. FISH OIL [Concomitant]
  10. COENZYME Q10 [Concomitant]
  11. L-CARNITINE [Concomitant]
  12. ALPHA-LIPOIC ACID [Concomitant]
  13. PATANOL [Concomitant]
  14. RESTASIS [Concomitant]
  15. LOVASTATIN [Concomitant]
  16. ZETIA [Concomitant]

REACTIONS (8)
  - ARTHRALGIA [None]
  - DRY EYE [None]
  - MUSCLE SPASMS [None]
  - MYALGIA [None]
  - PAIN IN EXTREMITY [None]
  - TOOTH ABSCESS [None]
  - TOOTH FRACTURE [None]
  - TOOTHACHE [None]
